FAERS Safety Report 6730852-1 (Version None)
Quarter: 2010Q2

REPORT INFORMATION
  Report Type: 
  Country: None (occurrence: None)
  Receive Date: 20100518
  Receipt Date: 20100504
  Transmission Date: 20101027
  Serious: Yes (Hospitalization, Other)
  Sender: FDA-Public Use
  Company Number: US-SANOFI-AVENTIS-2010SA025927

PATIENT
  Age: 69 Year
  Sex: Male

DRUGS (25)
  1. PLAVIX [Suspect]
     Indication: STENT PLACEMENT
     Route: 048
     Dates: start: 20090101
  2. PLAVIX [Suspect]
     Route: 048
  3. PLAVIX [Suspect]
     Route: 048
  4. COUMADIN [Suspect]
     Route: 065
  5. ASPIRIN [Suspect]
     Route: 065
  6. COREG [Concomitant]
  7. SINGULAIR [Concomitant]
  8. PROTONIX [Concomitant]
  9. PERCOCET [Concomitant]
     Dosage: 5/325MG EVERY 3-4HOURS PRN
  10. LEVAQUIN [Concomitant]
     Indication: OSTEOMYELITIS
  11. BENADRYL [Concomitant]
  12. MULTI-VITAMINS [Concomitant]
  13. FOLIC ACID [Concomitant]
  14. VITAMIN B COMPLEX TAB [Concomitant]
  15. SPIRONOLACTONE [Concomitant]
  16. BUMEX [Concomitant]
  17. ADVAIR DISKUS 100/50 [Concomitant]
     Dosage: DOSE:1 PUFF(S)
  18. LIPITOR [Concomitant]
  19. NAPROXEN [Concomitant]
  20. ALLEGRA D 24 HOUR [Concomitant]
     Dosage: 60/120
  21. IPRATROPIUM BROMIDE/SALBUTAMOL SULFATE [Concomitant]
  22. PHENYLMERCURIC ACETATE AND AMINOACETIC ACID AND SORBITOL AND OXYMETAZO [Concomitant]
  23. LOSARTAN POTASSIUM [Concomitant]
  24. NITRGLYCERIN TRANSDERMAL SYSTEM [Concomitant]
  25. ZOCOR [Concomitant]

REACTIONS (14)
  - ARTERIAL THROMBOSIS LIMB [None]
  - CHEST PAIN [None]
  - DEVICE DISLOCATION [None]
  - DYSPNOEA [None]
  - DYSPNOEA EXERTIONAL [None]
  - FATIGUE [None]
  - HYPERHIDROSIS [None]
  - HYPOTENSION [None]
  - OVERDOSE [None]
  - PERIPHERAL ISCHAEMIA [None]
  - PNEUMONIA STREPTOCOCCAL [None]
  - SEPSIS [None]
  - SKIN ULCER [None]
  - THROMBOSIS IN DEVICE [None]
